FAERS Safety Report 26184056 (Version 1)
Quarter: 2025Q4

REPORT INFORMATION
  Report Type: Report from Study
  Country: US (occurrence: US)
  Receive Date: 20251222
  Receipt Date: 20251222
  Transmission Date: 20260117
  Serious: Yes (Other)
  Sender: ROCHE
  Company Number: US-ROCHE-3326753

PATIENT
  Age: 57 Year
  Sex: Male

DRUGS (1)
  1. ACTEMRA [Suspect]
     Active Substance: TOCILIZUMAB
     Indication: Connective tissue disorder
     Route: 058

REACTIONS (4)
  - Cataract [Unknown]
  - Off label use [Unknown]
  - Hypoacusis [Unknown]
  - Glaucoma [Unknown]
